FAERS Safety Report 16787580 (Version 1)
Quarter: 2019Q3

REPORT INFORMATION
  Report Type: Spontaneous
  Country: US (occurrence: US)
  Receive Date: 20190909
  Receipt Date: 20190909
  Transmission Date: 20191005
  Serious: Yes (Disabling, Other)
  Sender: FDA-Public Use
  Company Number: None

PATIENT
  Age: 26 Year
  Sex: Female
  Weight: 74.25 kg

DRUGS (4)
  1. VITAMIN D [Concomitant]
     Active Substance: VITAMIN D NOS
  2. LUPRON DEPOT [Suspect]
     Active Substance: LEUPROLIDE ACETATE
     Indication: ENDOMETRIOSIS
     Dosage: ?          QUANTITY:1 INJECTION(S);OTHER FREQUENCY:3 MONTHS;?
     Route: 030
     Dates: start: 20180717
  3. MIRENA [Concomitant]
     Active Substance: LEVONORGESTREL
  4. VYVANSE [Concomitant]
     Active Substance: LISDEXAMFETAMINE DIMESYLATE

REACTIONS (6)
  - Suicidal ideation [None]
  - Paraesthesia [None]
  - Hypoaesthesia [None]
  - Tooth disorder [None]
  - Multiple sclerosis [None]
  - Cognitive disorder [None]

NARRATIVE: CASE EVENT DATE: 20180814
